FAERS Safety Report 20879028 (Version 2)
Quarter: 2023Q2

REPORT INFORMATION
  Report Type: Spontaneous
  Country: US (occurrence: US)
  Receive Date: 20220526
  Receipt Date: 20230516
  Transmission Date: 20230722
  Serious: No
  Sender: FDA-Public Use
  Company Number: US-RADIUS HEALTH INC.-2021US003088

PATIENT
  Age: 77 Year
  Sex: Female

DRUGS (1)
  1. TYMLOS [Suspect]
     Active Substance: ABALOPARATIDE
     Indication: Senile osteoporosis
     Dosage: 80 MICROGRAM, QD
     Route: 058
     Dates: start: 20210618

REACTIONS (6)
  - Oedema peripheral [Unknown]
  - Flushing [Unknown]
  - Balance disorder [Unknown]
  - Rash [Recovered/Resolved]
  - Heart rate increased [Unknown]
  - Back pain [Unknown]

NARRATIVE: CASE EVENT DATE: 20210501
